FAERS Safety Report 5823324-X (Version None)
Quarter: 2008Q3

REPORT INFORMATION
  Report Type: 
  Country: None (occurrence: None)
  Receive Date: 20080725
  Receipt Date: 20070614
  Transmission Date: 20090109
  Serious: No
  Sender: FDA-Public Use
  Company Number: US-AMGEN-KDL229611

PATIENT
  Sex: Male
  Weight: 79.5 kg

DRUGS (1)
  1. PROCRIT [Suspect]
     Indication: ANAEMIA
     Dates: start: 20070501

REACTIONS (2)
  - BACK PAIN [None]
  - DIZZINESS [None]
